FAERS Safety Report 8519409-X (Version None)
Quarter: 2012Q3

REPORT INFORMATION
  Report Type: 
  Country: None (occurrence: None)
  Receive Date: 20120718
  Receipt Date: 20120707
  Transmission Date: 20120928
  Serious: Yes (Other)
  Sender: FDA-Public Use
  Company Number: US-009507513-1207USA004521

PATIENT

DRUGS (1)
  1. CLARITIN-D [Suspect]
     Indication: ALLERGIC SINUSITIS
     Dosage: UNK, Q12H
     Route: 048
     Dates: start: 20120629, end: 20120702

REACTIONS (3)
  - VISION BLURRED [None]
  - BLINDNESS TRANSIENT [None]
  - DIPLOPIA [None]
